FAERS Safety Report 9742301 (Version 2)
Quarter: 2014Q2

REPORT INFORMATION
  Report Type: Report from Study
  Country: NL (occurrence: NL)
  Receive Date: 20131210
  Receipt Date: 20140616
  Transmission Date: 20141212
  Serious: Yes (Death)
  Sender: FDA-Public Use
  Company Number: NL-ABBVIE-13P-114-1177113-00

PATIENT
  Age: 78 Year
  Sex: Male

DRUGS (16)
  1. LUCRIN DEPOT [Suspect]
     Indication: PROSTATE CANCER
     Route: 058
     Dates: start: 20090312, end: 201312
  2. BICALUTAMIDE [Concomitant]
     Indication: PRODUCT USED FOR UNKNOWN INDICATION
     Dosage: NOT REPORTED FREQUENCY
     Route: 065
     Dates: start: 20090814
  3. CALCIUMCARBONATE/COLECALCIFEROL [Concomitant]
     Indication: PRODUCT USED FOR UNKNOWN INDICATION
     Dosage: NOT REPORTED FREQUENCY
     Route: 065
     Dates: start: 20121116
  4. ASCAL [Concomitant]
     Indication: PRODUCT USED FOR UNKNOWN INDICATION
     Dosage: NOT REPORTED FREQUENCY
     Route: 065
     Dates: start: 20110405
  5. CARBASALATE CALCIUM [Concomitant]
     Indication: PRODUCT USED FOR UNKNOWN INDICATION
     Dosage: NOT REPORTED FREQUENCY  POWDER
     Route: 065
     Dates: start: 20120308
  6. DENOSUMAB [Concomitant]
     Indication: PRODUCT USED FOR UNKNOWN INDICATION
     Dosage: NOT REPORTED FREQUENCY  70 MG/ML FL 1.7 ML
     Route: 065
     Dates: start: 20121116
  7. FUROSEMIDE [Concomitant]
     Indication: PRODUCT USED FOR UNKNOWN INDICATION
     Dosage: NOT REPORTED FREQUENCY
     Route: 065
     Dates: start: 20121116
  8. GLIMEPIRIDE [Concomitant]
     Indication: PRODUCT USED FOR UNKNOWN INDICATION
     Dosage: NOT REPORTED FREQUENCY
     Route: 065
     Dates: start: 20090818
  9. NOVORAPID [Concomitant]
     Indication: PRODUCT USED FOR UNKNOWN INDICATION
     Dosage: NOT REPORTED FREQUENCY 300E/3ML
     Route: 065
     Dates: start: 20110330
  10. LEVEMIR [Concomitant]
     Indication: PRODUCT USED FOR UNKNOWN INDICATION
     Dosage: NOT REPORTED FREQUENCY 300E/3ML PATR
     Route: 065
     Dates: start: 20090814
  11. LABETALOL [Concomitant]
     Indication: PRODUCT USED FOR UNKNOWN INDICATION
     Dosage: NOT REPORTED FREQUENCY
     Route: 065
     Dates: start: 20090814
  12. OMEPRAZOL CF [Concomitant]
     Indication: PRODUCT USED FOR UNKNOWN INDICATION
     Dosage: NOT REPORTED FREQUENCY  MSR
     Route: 065
     Dates: start: 20090814
  13. OXYCONTIN [Concomitant]
     Indication: PRODUCT USED FOR UNKNOWN INDICATION
     Dosage: MVA
     Route: 065
     Dates: start: 20110623
  14. PERINDOPR TERT-BKW [Concomitant]
     Indication: PRODUCT USED FOR UNKNOWN INDICATION
     Dosage: NOT REPORTED FREQUENCY
     Route: 065
     Dates: start: 20090814
  15. PREDNISOLON [Concomitant]
     Indication: PRODUCT USED FOR UNKNOWN INDICATION
     Dosage: NOT REPORTED FREQUENCY CAP FNA
     Route: 065
     Dates: start: 20100426
  16. CRESTOR [Concomitant]
     Indication: PRODUCT USED FOR UNKNOWN INDICATION
     Dosage: NOT REPORTED FREQUENCY FILMOMH
     Route: 065
     Dates: start: 20090814

REACTIONS (1)
  - Death [Fatal]
